FAERS Safety Report 5128150-5 (Version None)
Quarter: 2006Q4

REPORT INFORMATION
  Report Type: 
  Country: None (occurrence: None)
  Receive Date: 20061011
  Receipt Date: 20060921
  Transmission Date: 20070319
  Serious: Yes (Hospitalization, Other)
  Sender: FDA-Public Use
  Company Number: 2006-06-0988

PATIENT
  Age: 46 Year
  Sex: Male
  Weight: 63 kg

DRUGS (5)
  1. PEG-INTRON [Suspect]
     Indication: HEPATITIS C
     Dosage: 100 MCG; QW; SC
     Route: 058
     Dates: start: 20060523, end: 20060608
  2. REBETOL [Suspect]
     Indication: HEPATITIS C
     Dosage: 800 MG; QD; PO
     Route: 048
     Dates: start: 20060523, end: 20060614
  3. LENDORMIN [Concomitant]
  4. URSO [Concomitant]
  5. GLYCYRON [Concomitant]

REACTIONS (14)
  - AGGRESSION [None]
  - ALCOHOL POISONING [None]
  - ALCOHOLIC PSYCHOSIS [None]
  - CLAVICLE FRACTURE [None]
  - DEPRESSED MOOD [None]
  - DIZZINESS [None]
  - FALL [None]
  - FEELING ABNORMAL [None]
  - HALLUCINATION [None]
  - HALLUCINATION, AUDITORY [None]
  - LOSS OF CONSCIOUSNESS [None]
  - MULTIPLE DRUG OVERDOSE INTENTIONAL [None]
  - SUICIDE ATTEMPT [None]
  - TINNITUS [None]
